FAERS Safety Report 10021285 (Version 1)
Quarter: 2014Q1

REPORT INFORMATION
  Report Type: Spontaneous
  Country: US (occurrence: US)
  Receive Date: 20140319
  Receipt Date: 20140319
  Transmission Date: 20141002
  Serious: Yes (Death, Hospitalization)
  Sender: FDA-Public Use
  Company Number: US-MYLANLABS-2014S1005155

PATIENT
  Age: 75 Year
  Sex: Female

DRUGS (4)
  1. METHYLPREDNISOLONE [Suspect]
     Indication: PULMONARY TOXICITY
     Dosage: 2 MG/KG
     Route: 065
  2. METHYLPREDNISOLONE [Suspect]
     Indication: PULMONARY TOXICITY
     Dosage: 3G OVER 20 DAYS
     Route: 065
  3. AMIODARONE [Suspect]
     Dosage: MAINTENANCE DOSE
     Route: 065
  4. WARFARIN [Concomitant]
     Dosage: MAINTENANCE DOSE
     Route: 065

REACTIONS (3)
  - Gastrointestinal haemorrhage [Fatal]
  - Zygomycosis [Fatal]
  - Pulmonary toxicity [Recovering/Resolving]
